FAERS Safety Report 21161870 (Version 2)
Quarter: 2022Q3

REPORT INFORMATION
  Report Type: Report from Study
  Country: US (occurrence: US)
  Receive Date: 20220802
  Receipt Date: 20220902
  Transmission Date: 20221027
  Serious: Yes (Other)
  Sender: FDA-Public Use
  Company Number: US-BRISTOL-MYERS SQUIBB COMPANY-2022-016682

PATIENT
  Age: 72 Year
  Sex: Female
  Weight: 58.96 kg

DRUGS (2)
  1. REVLIMID [Suspect]
     Active Substance: LENALIDOMIDE
     Indication: Plasma cell myeloma
     Dosage: DAILY FOR 21 DAYS 7 DAYS OFF?BATCH NUMBER (A3689A), EXPIRY DATE (30-JUN-2024)
     Route: 048
     Dates: start: 20220120
  2. REVLIMID [Suspect]
     Active Substance: LENALIDOMIDE
     Dosage: 21 OF 28 DAYS
     Route: 048
     Dates: start: 20220121

REACTIONS (5)
  - Blood calcium decreased [Unknown]
  - Anxiety [Unknown]
  - Fatigue [Unknown]
  - Muscle spasms [Unknown]
  - Tremor [Unknown]

NARRATIVE: CASE EVENT DATE: 20220101
